FAERS Safety Report 9632189 (Version 2)
Quarter: 2013Q4

REPORT INFORMATION
  Report Type: Spontaneous
  Country: CA (occurrence: CA)
  Receive Date: 20131018
  Receipt Date: 20131122
  Transmission Date: 20140711
  Serious: Yes (Other)
  Sender: FDA-Public Use
  Company Number: CA-ROCHE-1290420

PATIENT
  Age: 31 Year
  Sex: Female

DRUGS (8)
  1. XOLAIR [Suspect]
     Indication: ASTHMA
     Route: 058
     Dates: start: 20131009
  2. VENTOLIN [Concomitant]
  3. SYMBICORT [Concomitant]
  4. AVAMYS [Concomitant]
  5. ATROVENT [Concomitant]
  6. PREDNISONE [Concomitant]
  7. SINGULAIR [Concomitant]
  8. ADVAIR [Concomitant]

REACTIONS (5)
  - Hand fracture [Unknown]
  - Lower limb fracture [Unknown]
  - Accident [Unknown]
  - Oropharyngeal pain [Unknown]
  - Aphonia [Recovered/Resolved]
